FAERS Safety Report 5872391-6 (Version None)
Quarter: 2008Q3

REPORT INFORMATION
  Report Type: 
  Country: None (occurrence: None)
  Receive Date: 20080905
  Receipt Date: 20080827
  Transmission Date: 20090109
  Serious: Yes (Hospitalization, Other)
  Sender: FDA-Public Use
  Company Number: US-JNJFOC-20080900487

PATIENT
  Sex: Male
  Weight: 97.52 kg

DRUGS (5)
  1. IBUPROFEN [Suspect]
  2. IBUPROFEN [Suspect]
     Indication: ARTHRITIS
  3. ALEVE [Suspect]
     Indication: ARTHRITIS
  4. EFFEXOR [Concomitant]
  5. KLONOPIN [Concomitant]

REACTIONS (6)
  - BLOOD IRON DECREASED [None]
  - GASTROINTESTINAL HAEMORRHAGE [None]
  - GASTROINTESTINAL ULCER [None]
  - HAEMATOCHEZIA [None]
  - HEART RATE IRREGULAR [None]
  - POLYP [None]
